FAERS Safety Report 21673036 (Version 1)
Quarter: 2022Q4

REPORT INFORMATION
  Report Type: Report from Study
  Country: US (occurrence: US)
  Receive Date: 20221202
  Receipt Date: 20221202
  Transmission Date: 20230112
  Serious: No
  Sender: FDA-Public Use
  Company Number: US-ABBVIE-4168910

PATIENT
  Age: 39 Year
  Sex: Female

DRUGS (4)
  1. HUMIRA [Suspect]
     Active Substance: ADALIMUMAB
     Indication: Psoriasis
     Route: 058
     Dates: start: 20220503
  2. Moderna covid vccine [Concomitant]
     Indication: COVID-19 immunisation
     Dosage: ONCE, 1 ST DOSE
     Route: 030
     Dates: start: 20210301
  3. Moderna covid vccine [Concomitant]
     Indication: COVID-19 immunisation
     Dosage: 2 ND DOSE, ONCE
     Route: 030
     Dates: start: 20210401
  4. Moderna covid vccine [Concomitant]
     Indication: COVID-19 immunisation
     Dosage: 3RD DOSE, ONCE
     Dates: start: 20211101

REACTIONS (3)
  - Gastroenteritis viral [Unknown]
  - Psoriasis [Not Recovered/Not Resolved]
  - COVID-19 [Recovered/Resolved]

NARRATIVE: CASE EVENT DATE: 20220501
